FAERS Safety Report 23052539 (Version 2)
Quarter: 2023Q4

REPORT INFORMATION
  Report Type: Spontaneous
  Country: IT (occurrence: IT)
  Receive Date: 20231011
  Receipt Date: 20231016
  Transmission Date: 20240110
  Serious: Yes (Hospitalization)
  Sender: FDA-Public Use
  Company Number: None

PATIENT
  Age: 57 Year
  Sex: Male

DRUGS (1)
  1. KESIMPTA [Suspect]
     Active Substance: OFATUMUMAB
     Indication: Multiple sclerosis
     Dosage: 50 MILLIGRAM PER MILLILITRE, QMO(1 SIRINGA OGNI 30 GIORNI)
     Route: 058
     Dates: start: 20230202, end: 20230903

REACTIONS (5)
  - Confusional state [Recovering/Resolving]
  - Disorientation [Recovering/Resolving]
  - Gait disturbance [Recovering/Resolving]
  - Hyperpyrexia [Recovering/Resolving]
  - Encephalitis viral [Recovering/Resolving]

NARRATIVE: CASE EVENT DATE: 20230916
